FAERS Safety Report 5456376-X (Version None)
Quarter: 2007Q3

REPORT INFORMATION
  Report Type: 
  Country: None (occurrence: None)
  Receive Date: 20070917
  Receipt Date: 20070917
  Transmission Date: 20080115
  Serious: No
  Sender: FDA-Public Use
  Company Number: None

PATIENT
  Sex: Male
  Weight: 99.7913 kg

DRUGS (2)
  1. VERAPAMIL [Suspect]
     Indication: HYPERTENSION
     Dosage: 180 MG DIALY PO
     Route: 048
     Dates: start: 20060530, end: 20060901
  2. VERAPAMIL [Suspect]
     Indication: HYPERTROPHIC CARDIOMYOPATHY
     Dosage: 180 MG DIALY PO
     Route: 048
     Dates: start: 20060530, end: 20060901

REACTIONS (4)
  - ASTHENIA [None]
  - DIZZINESS [None]
  - DRUG INTOLERANCE [None]
  - PHARMACEUTICAL PRODUCT COMPLAINT [None]
